FAERS Safety Report 8966104 (Version 1)
Quarter: 2012Q4

REPORT INFORMATION
  Report Type: 
  Country: IL (occurrence: IL)
  Receive Date: 20121217
  Receipt Date: 20121217
  Transmission Date: 20130627
  Serious: Yes (Hospitalization)
  Sender: FDA-Public Use
  Company Number: IL-AMGEN-ISRSP2012080072

PATIENT
  Sex: Female

DRUGS (3)
  1. PEGFILGRASTIM [Suspect]
     Indication: PROPHYLAXIS
     Dosage: UNK
  2. CYCLOPHOSPHAMIDE [Suspect]
     Indication: BREAST CANCER
     Dosage: UNK
  3. DOXORUBICIN [Suspect]
     Indication: BREAST CANCER
     Dosage: UNK

REACTIONS (1)
  - Febrile neutropenia [Recovered/Resolved]
